FAERS Safety Report 23529781 (Version 1)
Quarter: 2024Q1

REPORT INFORMATION
  Report Type: Report from Study
  Country: US (occurrence: US)
  Receive Date: 20240216
  Receipt Date: 20240216
  Transmission Date: 20240410
  Serious: Yes (Other)
  Sender: FDA-Public Use
  Company Number: US-ARGENX-2022-ARGX-US001954

PATIENT

DRUGS (2)
  1. VYVGART [Suspect]
     Active Substance: EFGARTIGIMOD ALFA-FCAB
     Indication: Myasthenia gravis
     Dosage: 4 WEEKLY DOSES, RESUMING ON THE 50TH DAY, EVERY OTHER WEEK; PREVIOUSLY ON FOUR WEEKS ON, FOUR WEEKS
     Route: 042
     Dates: start: 20220325
  2. MESTINON [Concomitant]
     Active Substance: PYRIDOSTIGMINE BROMIDE
     Indication: Drug therapy
     Dosage: UNK

REACTIONS (16)
  - Bulbar palsy [Unknown]
  - Myasthenia gravis [Unknown]
  - Insomnia [Unknown]
  - Vein disorder [Unknown]
  - Dysarthria [Unknown]
  - Dysphagia [Unknown]
  - Contusion [Unknown]
  - Speech disorder [Recovering/Resolving]
  - Unevaluable event [Recovering/Resolving]
  - Fatigue [Unknown]
  - Arthropod bite [Not Recovered/Not Resolved]
  - Migraine [Not Recovered/Not Resolved]
  - Nausea [Not Recovered/Not Resolved]
  - Inappropriate schedule of product administration [Unknown]
  - Dyspnoea [Unknown]
  - Ehlers-Danlos syndrome [Unknown]

NARRATIVE: CASE EVENT DATE: 20230801
